FAERS Safety Report 10264613 (Version 1)
Quarter: 2014Q2

REPORT INFORMATION
  Report Type: Spontaneous
  Country: US (occurrence: None)
  Receive Date: 20140625
  Receipt Date: 20140625
  Transmission Date: 20141212
  Serious: Yes (Death)
  Sender: FDA-Public Use
  Company Number: None

PATIENT
  Age: 58 Year
  Sex: Female

DRUGS (1)
  1. XALKORI [Suspect]
     Dosage: ONE CAPSULE TWICE DAILY ORAL
     Route: 048
     Dates: start: 20131018, end: 20140624

REACTIONS (1)
  - Death [None]
